FAERS Safety Report 6335761-8 (Version None)
Quarter: 2009Q3

REPORT INFORMATION
  Report Type: 
  Country: None (occurrence: None)
  Receive Date: 20090831
  Receipt Date: 20090818
  Transmission Date: 20100115
  Serious: Yes (Other)
  Sender: FDA-Public Use
  Company Number: DE-MERCK-0908DEU00035

PATIENT
  Age: 75 Year
  Sex: Male

DRUGS (4)
  1. ZETIA [Suspect]
     Indication: HYPERCHOLESTEROLAEMIA
     Route: 048
     Dates: start: 20080101, end: 20090811
  2. CARVEDILOL [Concomitant]
     Route: 065
  3. VALSARTAN [Concomitant]
     Route: 065
  4. LACIDIPINE [Concomitant]
     Route: 065

REACTIONS (2)
  - KNEE OPERATION [None]
  - MUSCULAR WEAKNESS [None]
